FAERS Safety Report 8712244 (Version 3)
Quarter: 2012Q4

REPORT INFORMATION
  Report Type: 
  Country: JP (occurrence: JP)
  Receive Date: 20120808
  Receipt Date: 20120927
  Transmission Date: 20130627
  Serious: Yes (Life-Threatening, Hospitalization)
  Sender: FDA-Public Use
  Company Number: JP-AMGEN-JPNSP2012048825

PATIENT
  Age: 73 Year
  Sex: Male
  Weight: 55 kg

DRUGS (11)
  1. RANMARK [Suspect]
     Indication: METASTASES TO BONE
     Dosage: 120 mg, qd
     Route: 058
     Dates: start: 20120529
  2. CASODEX [Concomitant]
     Dosage: Unknown
     Route: 065
  3. URSO [Concomitant]
     Indication: HEPATIC CIRRHOSIS
     Route: 048
  4. AMINOLEBAN EN [Concomitant]
     Indication: HEPATIC CIRRHOSIS
     Route: 048
  5. ALLELOCK OD [Concomitant]
     Indication: DERMATITIS ALLERGIC
     Route: 048
  6. PANVITAN [Concomitant]
     Route: 048
  7. PARIET [Concomitant]
     Indication: GASTROOESOPHAGEAL REFLUX DISEASE
     Route: 048
  8. KLARICID [Concomitant]
     Indication: BRONCHITIS CHRONIC
     Route: 048
  9. MUCODYNE [Concomitant]
     Indication: BRONCHITIS CHRONIC
     Route: 048
  10. MUCOSOLVAN [Concomitant]
     Indication: BRONCHITIS CHRONIC
     Route: 048
  11. LEUPLIN [Concomitant]
     Dosage: UNK
     Dates: start: 20120529

REACTIONS (3)
  - Disseminated intravascular coagulation [Recovering/Resolving]
  - Pancytopenia [Recovered/Resolved]
  - Pyrexia [Recovered/Resolved]
